FAERS Safety Report 5189347-1 (Version None)
Quarter: 2006Q4

REPORT INFORMATION
  Report Type: 
  Country: None (occurrence: None)
  Receive Date: 20061215
  Receipt Date: 20061205
  Transmission Date: 20070319
  Serious: Yes (Other)
  Sender: FDA-Public Use
  Company Number: 15173

PATIENT
  Age: 46 Year
  Sex: Female

DRUGS (4)
  1. METHOTREXATE [Suspect]
     Indication: ACUTE LYMPHOCYTIC LEUKAEMIA
     Dosage: 4450 MG WEEKLY IV
     Route: 042
     Dates: start: 20061113, end: 20061115
  2. ASPARAGINASE [Concomitant]
  3. METOCLOPRAMIDE [Concomitant]
  4. ITRACONAZOLE [Concomitant]

REACTIONS (1)
  - HYPERGLYCAEMIA [None]
